FAERS Safety Report 7524444-4 (Version None)
Quarter: 2011Q2

REPORT INFORMATION
  Report Type: 
  Country: None (occurrence: None)
  Receive Date: 20110606
  Receipt Date: 20110523
  Transmission Date: 20111010
  Serious: Yes (Other)
  Sender: FDA-Public Use
  Company Number: PHHY2011CA44709

PATIENT

DRUGS (1)
  1. ALISKIREN [Suspect]

REACTIONS (1)
  - URINE ALBUMIN/CREATININE RATIO INCREASED [None]
